FAERS Safety Report 8168693-3 (Version None)
Quarter: 2012Q1

REPORT INFORMATION
  Report Type: 
  Country: None (occurrence: None)
  Receive Date: 20120227
  Receipt Date: 20120222
  Transmission Date: 20120608
  Serious: Yes (Hospitalization, Other)
  Sender: FDA-Public Use
  Company Number: PHHY2011CA02855

PATIENT
  Sex: Female

DRUGS (5)
  1. ARTHROTEC [Concomitant]
     Dosage: UNK UKN, UNK
  2. PLAQUENIL [Concomitant]
     Dosage: UNK UKN, UNK
  3. PROLIA [Concomitant]
     Dosage: 60 MG, EVERY 6 MONTHS
     Route: 058
  4. ZOLEDRONOC ACID [Suspect]
     Indication: OSTEOPOROSIS
     Dosage: UNK UKN, UNK
     Route: 042
     Dates: start: 20091119, end: 20110203
  5. GABAPENTIN [Concomitant]
     Dosage: UNK UKN, UNK

REACTIONS (3)
  - PAIN [None]
  - ABSCESS JAW [None]
  - ANKLE FRACTURE [None]
